FAERS Safety Report 8723808 (Version 2)
Quarter: 2012Q4

REPORT INFORMATION
  Report Type: 
  Country: IE (occurrence: IE)
  Receive Date: 20120815
  Receipt Date: 20120831
  Transmission Date: 20130627
  Serious: Yes (Hospitalization, Other)
  Sender: FDA-Public Use
  Company Number: IE-US-EMD SERONO, INC.-7153320

PATIENT
  Age: 41 Year
  Sex: Male

DRUGS (2)
  1. REBIF [Suspect]
     Indication: MULTIPLE SCLEROSIS
     Route: 058
  2. DESMOPRESSIN [Suspect]
     Indication: ENURESIS
     Route: 048
     Dates: end: 20120814

REACTIONS (3)
  - Loss of consciousness [Recovered/Resolved]
  - Hyponatraemia [Unknown]
  - Fall [None]
